FAERS Safety Report 12954814 (Version 1)
Quarter: 2016Q4

REPORT INFORMATION
  Report Type: Spontaneous
  Country: US (occurrence: US)
  Receive Date: 20161118
  Receipt Date: 20161118
  Transmission Date: 20170207
  Serious: Yes (Hospitalization)
  Sender: FDA-Public Use
  Company Number: None

PATIENT
  Age: 58 Year
  Sex: Male
  Weight: 104.1 kg

DRUGS (11)
  1. GLIPIZIDE. [Concomitant]
     Active Substance: GLIPIZIDE
  2. ATORVASTATIN [Concomitant]
     Active Substance: ATORVASTATIN
  3. LIRAGLUTIDE [Suspect]
     Active Substance: LIRAGLUTIDE
     Indication: TYPE 2 DIABETES MELLITUS
     Route: 058
     Dates: start: 20150918, end: 20160516
  4. LISINOPRIL. [Concomitant]
     Active Substance: LISINOPRIL
  5. TESTOSTERONE CYPIONATE (DEPOTESTOSTERONE) [Concomitant]
  6. PANTOPRAZOLE [Concomitant]
     Active Substance: PANTOPRAZOLE SODIUM
  7. JANUMET [Suspect]
     Active Substance: METFORMIN HYDROCHLORIDE\SITAGLIPTIN PHOSPHATE
     Indication: TYPE 2 DIABETES MELLITUS
     Route: 048
     Dates: start: 20120212, end: 20160516
  8. ASPIRIN. [Concomitant]
     Active Substance: ASPIRIN
  9. PAROXETINE. [Concomitant]
     Active Substance: PAROXETINE
  10. LUTEIN [Concomitant]
     Active Substance: LUTEIN
  11. ZOLPIDEM [Concomitant]
     Active Substance: ZOLPIDEM\ZOLPIDEM TARTRATE

REACTIONS (3)
  - Pancreatitis [None]
  - Renal impairment [None]
  - Tachycardia [None]

NARRATIVE: CASE EVENT DATE: 20160516
